FAERS Safety Report 20229509 (Version 1)
Quarter: 2021Q4

REPORT INFORMATION
  Report Type: Spontaneous
  Country: US (occurrence: US)
  Receive Date: 20211225
  Receipt Date: 20211225
  Transmission Date: 20220303
  Serious: Yes (Other)
  Sender: FDA-Public Use
  Company Number: US-TEVA-2021-US-1991307

PATIENT
  Age: 8 Decade
  Sex: Female

DRUGS (2)
  1. TEMOZOLOMIDE [Suspect]
     Active Substance: TEMOZOLOMIDE
     Indication: Metastatic malignant melanoma
     Dosage: 75 MG/M2 DAILY; ON 6 WEEKS ON AND 2 WEEKS OFF SCHEDULE
     Route: 065
  2. PEMBROLIZUMAB [Suspect]
     Active Substance: PEMBROLIZUMAB
     Indication: Metastatic malignant melanoma
     Route: 065

REACTIONS (3)
  - Drug ineffective [Unknown]
  - Drug resistance [Unknown]
  - Off label use [Unknown]
